FAERS Safety Report 9779280 (Version 1)
Quarter: 2013Q4

REPORT INFORMATION
  Report Type: Spontaneous
  Country: US (occurrence: US)
  Receive Date: 20131223
  Receipt Date: 20131223
  Transmission Date: 20140711
  Serious: Yes (Other)
  Sender: FDA-Public Use
  Company Number: US-SHIONOGI, INC-2013000410

PATIENT
  Age: 68 Year
  Sex: Female
  Weight: 73.02 kg

DRUGS (8)
  1. OSPHENA [Suspect]
     Indication: ATROPHIC VULVOVAGINITIS
     Dosage: 60 MG, QD, IN THE MORNING WITH FOOD
     Route: 048
     Dates: start: 20131126, end: 20131218
  2. OSPHENA [Suspect]
     Indication: OFF LABEL USE
  3. NEURONTIN [Concomitant]
     Indication: PRODUCT USED FOR UNKNOWN INDICATION
     Dosage: UNK
     Route: 065
  4. LYRICA [Concomitant]
     Indication: PRODUCT USED FOR UNKNOWN INDICATION
     Dosage: UNK
     Route: 065
  5. EFFEXOR [Concomitant]
     Indication: PRODUCT USED FOR UNKNOWN INDICATION
     Dosage: UNK
     Route: 065
  6. FENTANYL [Concomitant]
     Indication: PAIN
     Dosage: UNK
     Route: 065
  7. KADIAN [Concomitant]
     Indication: PAIN
     Dosage: UNK
     Route: 065
  8. CLOBETASOL PROPIONATE [Concomitant]
     Indication: LICHEN SCLEROSUS
     Dosage: 0.05 %, UNK
     Route: 061
     Dates: start: 20131206, end: 201312

REACTIONS (9)
  - Lichen sclerosus [Unknown]
  - Drug hypersensitivity [Unknown]
  - Vulvovaginal burning sensation [Unknown]
  - Vulvovaginal swelling [Unknown]
  - Pain [Unknown]
  - Fall [Unknown]
  - Gait disturbance [Unknown]
  - Infection [Unknown]
  - Off label use [Unknown]
